FAERS Safety Report 17466605 (Version 3)
Quarter: 2020Q1

REPORT INFORMATION
  Report Type: Spontaneous
  Country: DK (occurrence: DK)
  Receive Date: 20200227
  Receipt Date: 20200325
  Transmission Date: 20200409
  Serious: Yes (Hospitalization, Other)
  Sender: FDA-Public Use
  Company Number: DK-ACCORD-173607

PATIENT
  Age: 13 Year
  Sex: Female

DRUGS (5)
  1. ETOPOSIDE. [Suspect]
     Active Substance: ETOPOSIDE
     Indication: HODGKIN^S DISEASE
     Dosage: ETOPOSIDE WAS GIVEN IN 2/3 DOSAGE OF PREVIOUS DOSE 125 MG/M2/DAY
  2. ETOPOSIDE. [Suspect]
     Active Substance: ETOPOSIDE
     Indication: HODGKIN^S DISEASE
     Dosage: 125 MG/M2 DAILY FOR 5 DAYS IN A CYCLE
     Route: 065
  3. DOXORUBICIN [Suspect]
     Active Substance: DOXORUBICIN
     Indication: HODGKIN^S DISEASE
     Dosage: 40 MG/M2
     Route: 065
  4. VINCRISTINE [Suspect]
     Active Substance: VINCRISTINE
     Indication: HODGKIN^S DISEASE
     Dosage: 1.5 MG/M2,FOR FIVE DAYS
     Route: 065
  5. PREDNISOLONE. [Suspect]
     Active Substance: PREDNISOLONE
     Indication: HODGKIN^S DISEASE
     Dosage: 60 MG/M2 DAILY; FOR 15 DAYS IN A CYCLE
     Route: 065

REACTIONS (4)
  - Neutropenic sepsis [Unknown]
  - Toxicity to various agents [Unknown]
  - Gastrointestinal haemorrhage [Unknown]
  - Cardiac failure [Unknown]
